FAERS Safety Report 5108978-8 (Version None)
Quarter: 2006Q3

REPORT INFORMATION
  Report Type: 
  Country: None (occurrence: None)
  Receive Date: 20060920
  Receipt Date: 20060906
  Transmission Date: 20061208
  Serious: Yes (Death)
  Sender: FDA-Public Use
  Company Number: SE-AMGEN-UK192998

PATIENT
  Sex: Male

DRUGS (4)
  1. NEULASTA [Suspect]
     Indication: CHEMOTHERAPY
  2. BLEOMYCIN [Concomitant]
  3. CISPLATIN [Concomitant]
  4. ETOPOSIDE [Concomitant]

REACTIONS (2)
  - DEATH [None]
  - PULMONARY FIBROSIS [None]
